FAERS Safety Report 4510614-6 (Version None)
Quarter: 2004Q4

REPORT INFORMATION
  Report Type: 
  Country: None (occurrence: None)
  Receive Date: 20041119
  Receipt Date: 20041108
  Transmission Date: 20050328
  Serious: No
  Sender: FDA-Public Use
  Company Number: 2004-122280-NL

PATIENT
  Age: 36 Year
  Sex: Male

DRUGS (2)
  1. MIRTAZAPINE [Suspect]
     Indication: DEPRESSION
     Dosage: 30 MG ORAL
     Route: 048
     Dates: start: 20041018, end: 20041025
  2. SERTRALINE HCL [Concomitant]

REACTIONS (3)
  - CONFUSIONAL STATE [None]
  - LETHARGY [None]
  - SOMNOLENCE [None]
